FAERS Safety Report 4444666-9 (Version None)
Quarter: 2004Q3

REPORT INFORMATION
  Report Type: 
  Country: None (occurrence: None)
  Receive Date: 20040907
  Receipt Date: 20040830
  Transmission Date: 20050211
  Serious: Yes (Other)
  Sender: FDA-Public Use
  Company Number: 200410854BVD

PATIENT
  Age: 23 Year
  Sex: Male
  Weight: 97 kg

DRUGS (3)
  1. CIPROFLOXACIN [Suspect]
     Dates: start: 20030710, end: 20030727
  2. COTRIMOXAZOL [Suspect]
     Dates: start: 20030710, end: 20030727
  3. DICLOFENAC [Suspect]
     Dates: start: 20030727

REACTIONS (2)
  - APLASTIC ANAEMIA [None]
  - DRUG TOXICITY [None]
